FAERS Safety Report 4745956-2 (Version None)
Quarter: 2005Q3

REPORT INFORMATION
  Report Type: 
  Country: None (occurrence: None)
  Receive Date: 20050816
  Receipt Date: 20050802
  Transmission Date: 20060218
  Serious: Yes (Hospitalization)
  Sender: FDA-Public Use
  Company Number: US-GLAXOSMITHKLINE-A0568594A

PATIENT
  Age: 51 Year
  Sex: Male

DRUGS (7)
  1. NICORETTE (ORANGE) [Suspect]
     Dosage: 2MG NINE TIMES PER DAY
     Route: 002
     Dates: start: 20050601, end: 20050731
  2. ECOTRIN REGULAR STRENGTH TABLETS [Concomitant]
     Indication: PROPHYLAXIS
     Dosage: 325MG PER DAY
     Route: 048
  3. PLAVIX [Concomitant]
  4. ZYRTEC [Concomitant]
  5. WELLBUTRIN [Concomitant]
  6. METOPROLOL [Concomitant]
  7. ALTACE [Concomitant]

REACTIONS (3)
  - CORONARY ARTERY OCCLUSION [None]
  - HYPOAESTHESIA [None]
  - NAUSEA [None]
